FAERS Safety Report 13093467 (Version 2)
Quarter: 2017Q1

REPORT INFORMATION
  Report Type: Spontaneous
  Country: US (occurrence: US)
  Receive Date: 20170106
  Receipt Date: 20170110
  Transmission Date: 20170428
  Serious: Yes (Hospitalization, Other)
  Sender: FDA-Public Use
  Company Number: US-SAOL THERAPEUTICS-2017SAO00001

PATIENT
  Age: 61 Year
  Sex: Male

DRUGS (4)
  1. MORPHINE [Suspect]
     Active Substance: MORPHINE
     Dosage: 1.6292 MG, \DAY
     Route: 037
     Dates: start: 20161228
  2. FENTANYL. [Suspect]
     Active Substance: FENTANYL
     Dosage: 950.4 ?G, \DAY
     Route: 037
     Dates: start: 20161228
  3. BACLOFEN. [Suspect]
     Active Substance: BACLOFEN
     Indication: PAIN
     Dosage: 152.74 ?G, \DAY
     Route: 037
     Dates: start: 20161228
  4. BACLOFEN. [Suspect]
     Active Substance: BACLOFEN
     Indication: NECK PAIN

REACTIONS (3)
  - Multiple sclerosis [Unknown]
  - Off label use [Unknown]
  - Device battery issue [Unknown]

NARRATIVE: CASE EVENT DATE: 20161215
